FAERS Safety Report 7942160-1 (Version None)
Quarter: 2011Q4

REPORT INFORMATION
  Report Type: 
  Country: None (occurrence: None)
  Receive Date: 20111128
  Receipt Date: 20111117
  Transmission Date: 20120403
  Serious: Yes (Other)
  Sender: FDA-Public Use
  Company Number: FR-ASTRAZENECA-2011SE45921

PATIENT
  Age: 17060 Day
  Sex: Male
  Weight: 95 kg

DRUGS (10)
  1. VANDETANIB [Suspect]
     Route: 048
     Dates: start: 20110713, end: 20110720
  2. VANDETANIB [Suspect]
     Route: 048
     Dates: start: 20110805, end: 20110823
  3. CALCIUM CARBONATE [Suspect]
  4. DESLORATADINE [Suspect]
  5. VANDETANIB [Suspect]
     Indication: THYROID CANCER
     Route: 048
     Dates: start: 20110411, end: 20110712
  6. VANDETANIB [Suspect]
     Route: 048
     Dates: start: 20111017
  7. VANDETANIB [Suspect]
     Route: 048
     Dates: start: 20110824, end: 20111016
  8. LEVOTHYROXINE SODIUM [Suspect]
  9. PREVISCAN [Suspect]
  10. NEXIUM [Suspect]
     Route: 048

REACTIONS (6)
  - FOLLICULITIS [None]
  - HYPERTENSION [None]
  - ASPARTATE AMINOTRANSFERASE INCREASED [None]
  - ALANINE AMINOTRANSFERASE INCREASED [None]
  - BLOOD THYROID STIMULATING HORMONE INCREASED [None]
  - ELECTROCARDIOGRAM QT PROLONGED [None]
